FAERS Safety Report 9116512 (Version 2)
Quarter: 2013Q1

REPORT INFORMATION
  Report Type: Spontaneous
  Country: GB (occurrence: GB)
  Receive Date: 20130225
  Receipt Date: 20130307
  Transmission Date: 20140127
  Serious: Yes (Other)
  Sender: FDA-Public Use
  Company Number: GB-VERTEX PHARMACEUTICALS INC.-2013-002632

PATIENT
  Age: 21 Year
  Sex: Female
  Weight: 66 kg

DRUGS (10)
  1. INCIVO [Suspect]
     Indication: HEPATITIS C
     Dosage: 750 MG, TID
     Route: 048
     Dates: start: 20120323, end: 20120619
  2. DERMOL 500 [Concomitant]
     Indication: DRY SKIN
     Dosage: DOSAGE FORM: LOTION, 500
     Route: 065
     Dates: start: 20120320
  3. DERMOL 500 [Concomitant]
     Indication: PRURITUS
  4. AVEENO [Concomitant]
     Indication: DRY SKIN
     Dosage: UNK, PRN
     Route: 065
     Dates: start: 20120320
  5. AVEENO [Concomitant]
     Indication: PRURITUS
  6. HYDROCORTISONE [Concomitant]
     Indication: DRY SKIN
     Dosage: DOSAGE FORM: CREAM
     Route: 065
     Dates: start: 20120327
  7. HYDROCORTISONE [Concomitant]
     Indication: PRURITUS
  8. CETRIZINE [Concomitant]
     Indication: PRURITUS
     Dosage: DOSAGE FORM: UNSPECIFIED
     Route: 065
     Dates: start: 20120330
  9. DOVONEX SCALP SOLUTION [Concomitant]
     Indication: DERMATITIS
     Dosage: DOSAGE FORM: OINTMENT, 1 APPLICATION DAILY
     Route: 065
     Dates: start: 20120327
  10. LACTULOSE [Concomitant]
     Indication: CONSTIPATION
     Dosage: DOSAGE FORM: UNSPECIFIED, 10-20 MLS
     Route: 065
     Dates: start: 20120410

REACTIONS (7)
  - Psoriasis [Not Recovered/Not Resolved]
  - Gingivitis [Recovered/Resolved]
  - Insomnia [Recovered/Resolved]
  - Dry skin [Recovered/Resolved]
  - Constipation [Not Recovered/Not Resolved]
  - Anal pruritus [Recovered/Resolved]
  - Pruritus [Recovered/Resolved]
